FAERS Safety Report 15125469 (Version 1)
Quarter: 2018Q3

REPORT INFORMATION
  Report Type: Spontaneous
  Country: US (occurrence: US)
  Receive Date: 20180710
  Receipt Date: 20180710
  Transmission Date: 20181010
  Serious: Yes (Other)
  Sender: FDA-Public Use
  Company Number: US-PFIZER INC-2018276978

PATIENT
  Sex: Male

DRUGS (4)
  1. MARIJUANA [Suspect]
     Active Substance: CANNABIS SATIVA SUBSP. INDICA TOP
     Dosage: UNK
  2. COCAINE [Suspect]
     Active Substance: COCAINE
     Dosage: UNK
  3. LYRICA [Suspect]
     Active Substance: PREGABALIN
     Indication: PAIN
     Dosage: UNK (PFIZER PGN 300 CAPSULES, ALSO KNOWN AS LYRICA)
  4. HEROIN [Suspect]
     Active Substance: DIAMORPHINE
     Dosage: UNK

REACTIONS (1)
  - Drug abuse [Unknown]
